FAERS Safety Report 13951506 (Version 1)
Quarter: 2017Q3

REPORT INFORMATION
  Report Type: Spontaneous
  Country: DE (occurrence: DE)
  Receive Date: 20170908
  Receipt Date: 20170908
  Transmission Date: 20171128
  Serious: Yes (Hospitalization, Other)
  Sender: FDA-Public Use
  Company Number: DE-SA-2017SA115101

PATIENT
  Sex: Female

DRUGS (3)
  1. LEMTRADA [Suspect]
     Active Substance: ALEMTUZUMAB
     Indication: RELAPSING-REMITTING MULTIPLE SCLEROSIS
     Route: 041
     Dates: start: 20151012, end: 20151017
  2. LEMTRADA [Suspect]
     Active Substance: ALEMTUZUMAB
     Indication: RELAPSING-REMITTING MULTIPLE SCLEROSIS
     Route: 041
     Dates: start: 20161024, end: 20161027
  3. L-THYROXINE [Concomitant]
     Active Substance: LEVOTHYROXINE
     Indication: HYPERTHYROIDISM
     Dosage: 1X1
     Route: 048

REACTIONS (11)
  - White blood cell count increased [Recovering/Resolving]
  - Injury [Unknown]
  - Tonsillitis [Unknown]
  - Peripheral swelling [Unknown]
  - Abdominal pain [Recovered/Resolved]
  - Hyponatraemia [Recovered/Resolved]
  - C-reactive protein increased [Recovering/Resolving]
  - Autoimmune thyroiditis [Unknown]
  - Gastrointestinal fungal infection [Unknown]
  - Eosinophilia [Recovering/Resolving]
  - Vulvovaginal candidiasis [Unknown]

NARRATIVE: CASE EVENT DATE: 201610
